FAERS Safety Report 4824186-X (Version None)
Quarter: 2005Q4

REPORT INFORMATION
  Report Type: 
  Country: None (occurrence: None)
  Receive Date: 20051108
  Receipt Date: 20051027
  Transmission Date: 20060501
  Serious: Yes (Hospitalization, Other)
  Sender: FDA-Public Use
  Company Number: USA0510112132

PATIENT
  Age: 60 Year
  Sex: Female

DRUGS (1)
  1. HUMULIN N [Suspect]
     Dosage: 20 U/2 DAY

REACTIONS (6)
  - BLOOD GLUCOSE INCREASED [None]
  - BRAIN HYPOXIA [None]
  - BRONCHITIS CHRONIC [None]
  - HALLUCINATION [None]
  - PNEUMONIA [None]
  - PULMONARY CONGESTION [None]
